FAERS Safety Report 14230039 (Version 1)
Quarter: 2017Q4

REPORT INFORMATION
  Report Type: Spontaneous
  Country: US (occurrence: None)
  Receive Date: 20171127
  Receipt Date: 20171127
  Transmission Date: 20180321
  Serious: Yes (Hospitalization)
  Sender: FDA-Public Use
  Company Number: None

PATIENT
  Age: 25 Year
  Sex: Male
  Weight: 97 kg

DRUGS (4)
  1. IPILIMUMAB 1MG/KG [Suspect]
     Active Substance: IPILIMUMAB
     Indication: NEOPLASM MALIGNANT
     Dosage: 91.5 MG Q 6 WEEKS IV
     Route: 042
     Dates: start: 20170418, end: 20170926
  2. NIVOLUMAB 3 MG/KG [Suspect]
     Active Substance: NIVOLUMAB
     Indication: BACK DISORDER
     Route: 042
     Dates: start: 20170418, end: 20171025
  3. IPILIMUMAB 1MG/KG [Suspect]
     Active Substance: IPILIMUMAB
     Indication: BACK DISORDER
     Dosage: 91.5 MG Q 6 WEEKS IV
     Route: 042
     Dates: start: 20170418, end: 20170926
  4. NIVOLUMAB 3 MG/KG [Suspect]
     Active Substance: NIVOLUMAB
     Indication: NEOPLASM MALIGNANT
     Route: 042
     Dates: start: 20170418, end: 20171025

REACTIONS (2)
  - Chylothorax [None]
  - Immune system disorder [None]

NARRATIVE: CASE EVENT DATE: 20171121
